FAERS Safety Report 4643946-1 (Version None)
Quarter: 2005Q2

REPORT INFORMATION
  Report Type: 
  Country: None (occurrence: None)
  Receive Date: 20050425
  Receipt Date: 20041125
  Transmission Date: 20051028
  Serious: Yes (Hospitalization)
  Sender: FDA-Public Use
  Company Number: PHBS2004JP15898

PATIENT
  Age: 49 Year
  Sex: Female

DRUGS (4)
  1. PREDNISOLONE [Suspect]
     Dosage: 40 MG/D
  2. STEROIDS NOS [Concomitant]
     Dosage: SEMI-PULSE THERAPY
  3. PLASMAPHERESIS [Concomitant]
  4. CYCLOSPORINE [Suspect]
     Indication: LUPUS NEPHRITIS
     Dosage: 150 MG/D
     Route: 065

REACTIONS (13)
  - AUTOIMMUNE HEPATITIS [None]
  - BLOOD BETA-D-GLUCAN INCREASED [None]
  - FUNGUS SEROLOGY TEST POSITIVE [None]
  - INFLAMMATION [None]
  - LUNG INFILTRATION [None]
  - LUPUS NEPHRITIS [None]
  - PNEUMOMEDIASTINUM [None]
  - PNEUMONITIS CRYPTOCOCCAL [None]
  - PROTEINURIA [None]
  - PYREXIA [None]
  - RENAL FAILURE [None]
  - RENAL IMPAIRMENT [None]
  - RESPIRATORY DISORDER [None]
